FAERS Safety Report 5860325-X (Version None)
Quarter: 2008Q3

REPORT INFORMATION
  Report Type: 
  Country: None (occurrence: None)
  Receive Date: 20080827
  Receipt Date: 20080122
  Transmission Date: 20090109
  Serious: No
  Sender: FDA-Public Use
  Company Number: US-ABBOTT-07P-163-0376047-00

PATIENT
  Sex: Male
  Weight: 101 kg

DRUGS (5)
  1. COATED PDS [Suspect]
     Indication: BLOOD TRIGLYCERIDES INCREASED
     Dosage: COATED
     Route: 048
     Dates: start: 20070611, end: 20070611
  2. COATED PDS [Suspect]
     Dosage: COATED
     Route: 048
     Dates: start: 20070616, end: 20070616
  3. COATED PDS [Suspect]
     Dosage: COATED
     Route: 048
     Dates: start: 20070701, end: 20070701
  4. COATED PDS [Suspect]
     Dosage: PLAIN
     Route: 048
     Dates: start: 20060201, end: 20070610
  5. INEGY [Concomitant]
     Indication: BLOOD CHOLESTEROL INCREASED

REACTIONS (3)
  - ABDOMINAL PAIN [None]
  - GASTROINTESTINAL DISORDER [None]
  - PARAESTHESIA [None]
